FAERS Safety Report 8960700 (Version 2)
Quarter: 2013Q1

REPORT INFORMATION
  Report Type: Report from Study
  Country: JP (occurrence: JP)
  Receive Date: 20121213
  Receipt Date: 20130123
  Transmission Date: 20140127
  Serious: Yes (Hospitalization)
  Sender: FDA-Public Use
  Company Number: JP-009507513-1212JPN003880

PATIENT
  Age: 68 Year
  Sex: Male
  Weight: 70 kg

DRUGS (21)
  1. PEGINTRON [Suspect]
     Indication: CHRONIC HEPATITIS C
     Dosage: 1.43 MICROGRAM PER KILOGRAM, QW
     Route: 058
     Dates: start: 20120920, end: 20121122
  2. PEGINTRON [Suspect]
     Dosage: UNK
     Route: 058
     Dates: start: 20121220
  3. REBETOL [Suspect]
     Indication: CHRONIC HEPATITIS C
     Dosage: 800 MG, QD
     Route: 048
     Dates: start: 20120920, end: 20120924
  4. REBETOL [Suspect]
     Dosage: 800 MG, QD
     Route: 048
     Dates: start: 20120927, end: 20121129
  5. REBETOL [Suspect]
     Dosage: UNK
     Route: 048
     Dates: start: 20121220
  6. TELAVIC [Suspect]
     Indication: CHRONIC HEPATITIS C
     Dosage: 1500 MG, QD
     Route: 048
     Dates: start: 20120920, end: 20120920
  7. TELAVIC [Suspect]
     Dosage: UNK
     Route: 048
     Dates: end: 20120924
  8. TELAVIC [Suspect]
     Dosage: 1000 MG, QD
     Route: 048
     Dates: start: 20120927, end: 20121129
  9. PREDONINE [Suspect]
     Dosage: 20 MG, QD,  FORMULATION-POWDER30
     Route: 048
     Dates: start: 20121108
  10. PREDONINE [Suspect]
     Dosage: 25 MG, QD, FORMULATION-POWDER30
     Route: 048
  11. PREDONINE [Suspect]
     Dosage: 10 MG, QD, FORMULATION-POWDER30
     Route: 048
     Dates: start: 20121115
  12. PREDONINE [Suspect]
     Dosage: 20 MG, QD,, FORMULATION-POWDER30
     Route: 048
     Dates: start: 20121129
  13. PREDONINE [Suspect]
     Dosage: 30 MG, QD, , FORMULATION-POWDER30
     Route: 048
     Dates: start: 20121130, end: 20121204
  14. PREDONINE [Suspect]
     Dosage: 25 MG, QD, FORMULATION-POWDER
     Route: 048
     Dates: start: 20121205, end: 20121207
  15. PREDONINE [Suspect]
     Dosage: 20 MG, QD, FORMULATION-POWDER
     Route: 048
     Dates: start: 20121208, end: 20121210
  16. PREDONINE [Suspect]
     Dosage: 15 MG, QD, FORMULATION-POWDER
     Route: 048
     Dates: start: 20121211, end: 20121213
  17. PREDONINE [Suspect]
     Dosage: 10 MG, QD, FORMULATION-POWDER
     Route: 048
     Dates: start: 20121214, end: 20121216
  18. PREDONINE [Suspect]
     Dosage: 5 MG, QD, FORMULATION-POWDER
     Route: 048
     Dates: start: 20121217
  19. ALESION [Concomitant]
     Indication: PROPHYLAXIS
     Dosage: 20 MG, QD, FORMULATION-POWDER
     Route: 048
     Dates: start: 20120920
  20. [COMPOSITION UNSPECIFIED] [Concomitant]
     Dosage: 20 MG, QD, FORMULATION-POWDER
     Route: 048
  21. XYZAL [Concomitant]
     Indication: RASH
     Dosage: 5 MG, QD, FORMULATION-POWDER
     Route: 048
     Dates: start: 20121129

REACTIONS (4)
  - Anaemia [Recovered/Resolved]
  - Drug eruption [Recovering/Resolving]
  - Rash [Not Recovered/Not Resolved]
  - Sepsis [Recovered/Resolved]
